FAERS Safety Report 4779967-8 (Version None)
Quarter: 2005Q3

REPORT INFORMATION
  Report Type: 
  Country: None (occurrence: None)
  Receive Date: 20050927
  Receipt Date: 20050914
  Transmission Date: 20060218
  Serious: Yes (Hospitalization)
  Sender: FDA-Public Use
  Company Number: 5534

PATIENT
  Age: 61 Year
  Sex: Male

DRUGS (3)
  1. TOPOTECAN [Suspect]
     Dosage: 1.1MG PER DAY
     Route: 042
     Dates: start: 20050801, end: 20050805
  2. CARBOPLATIN [Suspect]
     Indication: DRUG USE FOR UNKNOWN INDICATION
     Dosage: 270MG PER DAY
     Route: 065
     Dates: start: 20050803, end: 20050803
  3. NARTOGRASTIM [Concomitant]
     Dosage: 100UG PER DAY
     Route: 058
     Dates: start: 20050808, end: 20050819

REACTIONS (4)
  - HAEMOGLOBIN DECREASED [None]
  - LEUKOPENIA [None]
  - RETICULOCYTE COUNT DECREASED [None]
  - THROMBOCYTOPENIA [None]
